FAERS Safety Report 17342540 (Version 1)
Quarter: 2020Q1

REPORT INFORMATION
  Report Type: Spontaneous
  Country: US (occurrence: US)
  Receive Date: 20200129
  Receipt Date: 20200129
  Transmission Date: 20200409
  Serious: No
  Sender: FDA-Public Use
  Company Number: US-ALLERGAN-1924200US

PATIENT
  Sex: Female

DRUGS (2)
  1. BOTOX COSMETIC [Suspect]
     Active Substance: ONABOTULINUMTOXINA
     Indication: MUSCLE HYPERTROPHY
     Dosage: LESS THAN 8 UNITS, SINGLE
     Dates: start: 20190619, end: 20190619
  2. BOTOX COSMETIC [Suspect]
     Active Substance: ONABOTULINUMTOXINA
     Indication: SKIN WRINKLING
     Dosage: 60 UNITS, SINGLE
     Dates: start: 201905, end: 201905

REACTIONS (14)
  - Dizziness [Recovered/Resolved]
  - Eye pain [Unknown]
  - Off label use [Unknown]
  - Hypoaesthesia [Unknown]
  - Thirst [Recovered/Resolved]
  - Insomnia [Unknown]
  - Hyperhidrosis [Recovered/Resolved]
  - Bone loss [Unknown]
  - Pain [Unknown]
  - Joint stiffness [Unknown]
  - Headache [Unknown]
  - Euphoric mood [Recovered/Resolved]
  - Head discomfort [Unknown]
  - Influenza like illness [Recovered/Resolved]

NARRATIVE: CASE EVENT DATE: 20190619
